FAERS Safety Report 7094469-4 (Version None)
Quarter: 2010Q4

REPORT INFORMATION
  Report Type: 
  Country: None (occurrence: None)
  Receive Date: 20101110
  Receipt Date: 20101101
  Transmission Date: 20110411
  Serious: Yes (Hospitalization)
  Sender: FDA-Public Use
  Company Number: CHPA2010US17265

PATIENT
  Sex: Male

DRUGS (8)
  1. ASCRIPTIN BUFFERED CAPS UNKNOWN FORMULA (NCH) [Suspect]
     Indication: PROPHYLAXIS
     Dosage: UNK , UNK
     Route: 048
  2. ZOCOR [Concomitant]
  3. DOVONEX [Concomitant]
  4. PSORCON [Concomitant]
  5. HYDROMORPHONE HCL [Concomitant]
     Dosage: UNK
     Dates: start: 20101001, end: 20101003
  6. ZOFRAN [Concomitant]
     Dosage: UNK
     Dates: start: 20101001, end: 20101003
  7. JANUVIA [Concomitant]
  8. AMARYL [Concomitant]

REACTIONS (1)
  - RECTAL HAEMORRHAGE [None]
